FAERS Safety Report 7457600-4 (Version None)
Quarter: 2011Q2

REPORT INFORMATION
  Report Type: 
  Country: None (occurrence: None)
  Receive Date: 20110504
  Receipt Date: 20110427
  Transmission Date: 20111010
  Serious: Yes (Hospitalization, Other)
  Sender: FDA-Public Use
  Company Number: AU-AMGEN-KDC407958

PATIENT
  Age: 67 Year
  Sex: Male

DRUGS (16)
  1. SELENIUM [Concomitant]
     Dosage: UNK UNK, QD
     Route: 048
     Dates: start: 20100301
  2. ESOMEPRAZOLE MAGNESIUM [Concomitant]
     Dosage: 40 MG, QD
     Route: 048
     Dates: start: 20100324
  3. TROPISETRON [Concomitant]
     Dosage: 5 MG, UNK
     Route: 042
     Dates: start: 20100414
  4. FLUOROPYRIMIDINE [Concomitant]
     Indication: GASTROOESOPHAGEAL CANCER
     Dosage: 4172 MG, QD
     Route: 042
     Dates: start: 20100414, end: 20100724
  5. TOCOPHEROL CONCENTRATE CAP [Concomitant]
     Dosage: UNK UNK, QD
     Route: 048
     Dates: start: 20100301
  6. ASCORBIC ACID [Concomitant]
     Dosage: UNK UNK, TID
     Route: 048
     Dates: start: 20100301
  7. MULTI-VITAMINS [Concomitant]
     Dosage: UNK UNK, QD
     Route: 048
     Dates: start: 20100301
  8. COENZYME Q10 [Concomitant]
     Dosage: UNK UNK, BID
     Route: 048
     Dates: start: 20100301
  9. ECHINACEA EXTRACT [Concomitant]
     Dosage: UNK UNK, QD
     Route: 048
     Dates: start: 20100301
  10. LOVAZA [Concomitant]
     Dosage: 10 ML, BID
     Route: 048
     Dates: start: 20100301
  11. PANITUMUMAB [Suspect]
     Indication: GASTROOESOPHAGEAL CANCER
     Dosage: 666 MG, Q3WK
     Route: 042
     Dates: start: 20100413
  12. CISPLATIN [Concomitant]
     Indication: GASTROOESOPHAGEAL CANCER
     Dosage: 112 MG, ONE TIME DOSE
     Route: 042
     Dates: start: 20100414, end: 20100414
  13. DEXAMETHASONE [Concomitant]
     Dosage: UNK UNK, UNK
     Dates: start: 20100413
  14. METOPROLOL SUCCINATE [Concomitant]
     Dosage: UNK UNK, UNK
     Route: 048
     Dates: start: 20100416
  15. APREPITANT [Concomitant]
     Dosage: UNK UNK, UNK
     Route: 048
     Dates: start: 20100414
  16. DOCETAXEL [Concomitant]
     Indication: GASTROOESOPHAGEAL CANCER
     Dosage: 56 MG, UNK
     Route: 042
     Dates: start: 20100414, end: 20100713

REACTIONS (2)
  - ORTHOSTATIC HYPOTENSION [None]
  - ATRIAL FLUTTER [None]
